FAERS Safety Report 8648389 (Version 7)
Quarter: 2013Q1

REPORT INFORMATION
  Report Type: Spontaneous
  Country: JP (occurrence: JP)
  Receive Date: 20120703
  Receipt Date: 20130131
  Transmission Date: 20140127
  Serious: Yes (Other)
  Sender: FDA-Public Use
  Company Number: JP-B.I. PHARMACEUTICALS,INC./RIDGEFIELD-2012-EU-03339GD

PATIENT
  Age: 74 Year
  Sex: Male

DRUGS (7)
  1. SIFROL [Suspect]
     Indication: PARKINSON^S DISEASE
     Dates: start: 20071115
  2. AMANTADINE [Suspect]
     Indication: PARKINSON^S DISEASE
     Dates: start: 20071115
  3. LEVODOPA [Suspect]
     Indication: PARKINSON^S DISEASE
     Dates: start: 20071115
  4. DROXIDOPA [Suspect]
     Indication: PARKINSON^S DISEASE
     Dates: start: 20071115
  5. ZONISAMIDE [Suspect]
     Indication: PARKINSON^S DISEASE
     Dates: start: 20101209
  6. TAMSULOSIN [Suspect]
     Indication: BENIGN PROSTATIC HYPERPLASIA
     Dates: start: 20101019
  7. SOLIFENACIN [Suspect]
     Indication: HYPERTONIC BLADDER
     Dates: start: 20101019

REACTIONS (3)
  - Acute hepatitis B [Unknown]
  - Benign prostatic hyperplasia [Unknown]
  - Hypertonic bladder [Unknown]
